FAERS Safety Report 6348779-6 (Version None)
Quarter: 2009Q3

REPORT INFORMATION
  Report Type: 
  Country: None (occurrence: None)
  Receive Date: 20090911
  Receipt Date: 20090903
  Transmission Date: 20100115
  Serious: Yes (Other)
  Sender: FDA-Public Use
  Company Number: BR-BRISTOL-MYERS SQUIBB COMPANY-14772115

PATIENT
  Age: 66 Year
  Sex: Female
  Weight: 108 kg

DRUGS (2)
  1. APROZIDE [Suspect]
     Indication: BLOOD PRESSURE
     Dosage: DOSE INCREASED TO 2 TABS JUN09-AUG09:1TAB,300 MG  AUG09-ONG:2 TABS 600 MG APROZIDE 300 MG TABS
     Route: 048
     Dates: start: 20090601
  2. AMITRIPTYLINE [Concomitant]
     Indication: MIGRAINE
     Dosage: 1 DF=1 TAB FORMULATION: TABS
     Route: 048
     Dates: start: 20081101

REACTIONS (3)
  - DRUG INEFFECTIVE [None]
  - OVERDOSE [None]
  - PNEUMONIA [None]
